FAERS Safety Report 8015551-0 (Version None)
Quarter: 2011Q4

REPORT INFORMATION
  Report Type: 
  Country: None (occurrence: None)
  Receive Date: 20111228
  Receipt Date: 20111228
  Transmission Date: 20120403
  Serious: Yes (Hospitalization)
  Sender: FDA-Public Use
  Company Number: None

PATIENT
  Age: 77 Year
  Sex: Male
  Weight: 123.5 kg

DRUGS (1)
  1. WARFARIN SODIUM [Suspect]
     Indication: SURGERY
     Dosage: 3 MG ONCE PO
     Route: 048
     Dates: start: 20111031, end: 20111204

REACTIONS (5)
  - GASTRIC HAEMORRHAGE [None]
  - HAEMOGLOBIN DECREASED [None]
  - MELAENA [None]
  - INTERNATIONAL NORMALISED RATIO DECREASED [None]
  - GASTROINTESTINAL HAEMORRHAGE [None]
